FAERS Safety Report 18785219 (Version 6)
Quarter: 2022Q1

REPORT INFORMATION
  Report Type: Report from Study
  Country: DE (occurrence: DE)
  Receive Date: 20210125
  Receipt Date: 20220228
  Transmission Date: 20220424
  Serious: Yes (Hospitalization)
  Sender: FDA-Public Use
  Company Number: DE-TAKEDA-2021TUS003103

PATIENT
  Age: 18 Year
  Sex: Female
  Weight: 50 kg

DRUGS (20)
  1. PARATHYROID HORMONE [Suspect]
     Active Substance: PARATHYROID HORMONE
     Indication: Hypoparathyroidism
     Dosage: 50 MICROGRAM, QD
     Route: 058
     Dates: start: 20210112, end: 20210125
  2. PARATHYROID HORMONE [Suspect]
     Active Substance: PARATHYROID HORMONE
     Indication: Hypoparathyroidism
     Dosage: 50 MICROGRAM, QD
     Route: 058
     Dates: start: 20210112, end: 20210125
  3. PARATHYROID HORMONE [Suspect]
     Active Substance: PARATHYROID HORMONE
     Indication: Hypoparathyroidism
     Dosage: 50 MICROGRAM, QD
     Route: 058
     Dates: start: 20210112, end: 20210125
  4. PARATHYROID HORMONE [Suspect]
     Active Substance: PARATHYROID HORMONE
     Dosage: 25 MICROGRAM, BID
     Route: 058
     Dates: start: 20210112
  5. PARATHYROID HORMONE [Suspect]
     Active Substance: PARATHYROID HORMONE
     Dosage: 25 MICROGRAM, BID
     Route: 058
     Dates: start: 20210112
  6. PARATHYROID HORMONE [Suspect]
     Active Substance: PARATHYROID HORMONE
     Dosage: 25 MICROGRAM, BID
     Route: 058
     Dates: start: 20210112
  7. HYDROCORTISONE [Concomitant]
     Active Substance: HYDROCORTISONE
     Dosage: 10 MILLIGRAM, QD
     Route: 048
  8. CALCIUM [Concomitant]
     Active Substance: CALCIUM
     Indication: Hypoparathyroidism
     Dosage: 600 MILLIGRAM
     Route: 048
  9. CALCITRIOL [Concomitant]
     Active Substance: CALCITRIOL
     Indication: Hypoparathyroidism
     Dosage: 0.5 MICROGRAM, QD
     Route: 048
  10. MAGNESIUM OPTI TABS [Concomitant]
     Indication: Hypoparathyroidism
     Dosage: 250 MILLIGRAM, QD
     Route: 048
  11. SODIUM BICARBONATE [Concomitant]
     Active Substance: SODIUM BICARBONATE
     Indication: Autoimmune disorder
     Dosage: 1000 MILLIGRAM, QD
     Route: 048
  12. SELENASE T [Concomitant]
     Dosage: 50 MICROGRAM, QD
     Route: 048
  13. ZINC GLUCONATE [Concomitant]
     Active Substance: ZINC GLUCONATE
     Dosage: 10 MILLIGRAM, QD
     Route: 048
  14. PANKREATAN [Concomitant]
     Dosage: 25000 INTERNATIONAL UNIT
     Route: 048
  15. FERROUS GLYCINE SULFATE [Concomitant]
     Active Substance: FERROUS GLYCINE SULFATE
     Dosage: 40 MILLIGRAM, QD
     Route: 048
  16. NUTROPIN [Concomitant]
     Active Substance: SOMATROPIN
     Dosage: 0.4 MILLIGRAM, QD
     Route: 048
  17. FLUCONAZOLE [Concomitant]
     Active Substance: FLUCONAZOLE
     Dosage: 50 MILLIGRAM, QD
     Route: 048
  18. NOVORAPID [Concomitant]
     Active Substance: INSULIN ASPART
     Dosage: 1.2 INTERNATIONAL UNIT, PRN
     Route: 065
  19. LEVEMIR [Concomitant]
     Active Substance: INSULIN DETEMIR
     Dosage: 16 INTERNATIONAL UNIT
     Route: 058
  20. FLUDROCORTISONE [Concomitant]
     Active Substance: FLUDROCORTISONE
     Dosage: 0.05 MICROGRAM
     Route: 048

REACTIONS (5)
  - Hospitalisation [Recovered/Resolved]
  - Depression [Recovering/Resolving]
  - Drug titration [Not Recovered/Not Resolved]
  - Rash [Recovered/Resolved]
  - Off label use [Recovered/Resolved]

NARRATIVE: CASE EVENT DATE: 20210112
